FAERS Safety Report 6561302-6 (Version None)
Quarter: 2010Q1

REPORT INFORMATION
  Report Type: 
  Country: None (occurrence: None)
  Receive Date: 20100130
  Receipt Date: 20091020
  Transmission Date: 20100710
  Serious: Yes (Hospitalization)
  Sender: FDA-Public Use
  Company Number: US-ABBOTT-09P-163-0602305-00

PATIENT
  Sex: Female
  Weight: 41.768 kg

DRUGS (1)
  1. HUMIRA [Suspect]
     Indication: CROHN'S DISEASE
     Route: 058
     Dates: start: 20090930

REACTIONS (9)
  - ABASIA [None]
  - ABDOMINAL PAIN [None]
  - ASTHENIA [None]
  - CROHN'S DISEASE [None]
  - DEHYDRATION [None]
  - DYSPNOEA [None]
  - HYPOPHAGIA [None]
  - INJECTION SITE PAIN [None]
  - PAIN [None]
